FAERS Safety Report 5456580-0 (Version None)
Quarter: 2007Q3

REPORT INFORMATION
  Report Type: 
  Country: None (occurrence: None)
  Receive Date: 20070918
  Receipt Date: 20070228
  Transmission Date: 20080115
  Serious: Yes (Hospitalization, Other)
  Sender: FDA-Public Use
  Company Number: US-ASTRAZENECA-2006UW25312

PATIENT
  Age: 49 Year
  Sex: Male
  Weight: 80 kg

DRUGS (9)
  1. SEROQUEL [Suspect]
     Indication: SCHIZOPHRENIA
     Route: 048
  2. SEROQUEL [Suspect]
     Indication: DEPRESSION
     Route: 048
  3. CLOZARIL [Concomitant]
  4. HALDOL [Concomitant]
  5. NAVANE [Concomitant]
  6. RISPERDAL [Concomitant]
  7. THORAZINE [Concomitant]
     Dates: start: 19700101
  8. ZYPREXA [Concomitant]
  9. ZOLOFT [Concomitant]
     Dates: start: 20060101

REACTIONS (2)
  - TARDIVE DYSKINESIA [None]
  - TYPE 2 DIABETES MELLITUS [None]
